FAERS Safety Report 10507600 (Version 1)
Quarter: 2014Q4

REPORT INFORMATION
  Report Type: Spontaneous
  Country: US (occurrence: US)
  Receive Date: 20141009
  Receipt Date: 20141009
  Transmission Date: 20150528
  Serious: No
  Sender: FDA-Public Use
  Company Number: US-PFIZER INC-2014276471

PATIENT
  Age: 55 Year
  Sex: Female

DRUGS (1)
  1. NORVASC [Suspect]
     Active Substance: AMLODIPINE BESYLATE
     Indication: HYPERTENSION
     Dosage: UNK

REACTIONS (5)
  - Chest discomfort [Unknown]
  - Paraesthesia oral [Unknown]
  - Burning sensation [Unknown]
  - Rash [Unknown]
  - Blood pressure inadequately controlled [Unknown]
